FAERS Safety Report 15918426 (Version 1)
Quarter: 2019Q1

REPORT INFORMATION
  Report Type: Spontaneous
  Country: US (occurrence: US)
  Receive Date: 20190205
  Receipt Date: 20190205
  Transmission Date: 20190417
  Serious: No
  Sender: FDA-Public Use
  Company Number: US-SA-2019SA027450

PATIENT
  Sex: Male

DRUGS (3)
  1. FUROSEMIDE. [Suspect]
     Active Substance: FUROSEMIDE
  2. AVAPRO [Suspect]
     Active Substance: IRBESARTAN
  3. DILTIAZEM HYDROCHLORIDE. [Suspect]
     Active Substance: DILTIAZEM HYDROCHLORIDE

REACTIONS (3)
  - Oropharyngeal pain [Unknown]
  - Arthralgia [Unknown]
  - Myalgia [Unknown]
